FAERS Safety Report 6577588-8 (Version None)
Quarter: 2010Q1

REPORT INFORMATION
  Report Type: 
  Country: None (occurrence: None)
  Receive Date: 20100211
  Receipt Date: 20100203
  Transmission Date: 20100710
  Serious: Yes (Other)
  Sender: FDA-Public Use
  Company Number: BR-ASTRAZENECA-2010SE05169

PATIENT
  Age: 53 Year
  Sex: Male

DRUGS (5)
  1. ATENOLOL [Suspect]
  2. ASPIRIN [Concomitant]
  3. ATORVASTATIN [Concomitant]
  4. ENALAPRIL MALEATE [Concomitant]
  5. ANLODIPINE [Concomitant]

REACTIONS (1)
  - ANGINA PECTORIS [None]
